FAERS Safety Report 19320627 (Version 3)
Quarter: 2021Q2

REPORT INFORMATION
  Report Type: Report from Study
  Country: US (occurrence: US)
  Receive Date: 20210527
  Receipt Date: 20210604
  Transmission Date: 20210717
  Serious: Yes (Hospitalization)
  Sender: FDA-Public Use
  Company Number: US-UNITED THERAPEUTICS-UNT-2021-009436

PATIENT
  Age: 24 Year
  Sex: Female
  Weight: 99 kg

DRUGS (2)
  1. TREPROSTINIL SODIUM (IV) [Suspect]
     Active Substance: TREPROSTINIL SODIUM
     Indication: PULMONARY ARTERIAL HYPERTENSION
     Dosage: UNK, CONTINUING
     Route: 041
     Dates: start: 20210520
  2. TREPROSTINIL SODIUM (IV) [Suspect]
     Active Substance: TREPROSTINIL SODIUM
     Dosage: 0.009 ?G/KG, CONTINUING
     Route: 041

REACTIONS (5)
  - Nausea [Unknown]
  - Diarrhoea [Unknown]
  - Respiration abnormal [Not Recovered/Not Resolved]
  - Migraine [Unknown]
  - Pain in jaw [Unknown]

NARRATIVE: CASE EVENT DATE: 202105
